FAERS Safety Report 21479065 (Version 1)
Quarter: 2022Q4

REPORT INFORMATION
  Report Type: Report from Study
  Country: US (occurrence: US)
  Receive Date: 20221019
  Receipt Date: 20221019
  Transmission Date: 20230112
  Serious: Yes (Hospitalization)
  Sender: FDA-Public Use
  Company Number: US-BoehringerIngelheim-2020-BI-060919

PATIENT
  Age: 87 Year
  Sex: Male

DRUGS (2)
  1. OFEV [Suspect]
     Active Substance: NINTEDANIB
     Route: 065
     Dates: start: 20200921
  2. OFEV [Suspect]
     Active Substance: NINTEDANIB
     Indication: Product used for unknown indication

REACTIONS (5)
  - Pulmonary mass [Not Recovered/Not Resolved]
  - Malaise [Unknown]
  - Treatment noncompliance [Unknown]
  - Diarrhoea [Recovered/Resolved]
  - Diarrhoea [Unknown]
